FAERS Safety Report 21488933 (Version 1)
Quarter: 2022Q4

REPORT INFORMATION
  Report Type: Spontaneous
  Country: US (occurrence: US)
  Receive Date: 20221021
  Receipt Date: 20221021
  Transmission Date: 20230112
  Serious: Yes (Other)
  Sender: FDA-Public Use
  Company Number: US-SA-SAC20221017000934

PATIENT
  Age: 57 Year
  Sex: Male

DRUGS (1)
  1. ZANTAC [Suspect]
     Active Substance: RANITIDINE HYDROCHLORIDE
     Indication: Gastric ulcer
     Dosage: 150 MGOTHER; QD
     Route: 065
     Dates: start: 199510, end: 202006

REACTIONS (2)
  - Haematological malignancy [Unknown]
  - Chronic leukaemia [Unknown]

NARRATIVE: CASE EVENT DATE: 20180401
